FAERS Safety Report 4718855-X (Version None)
Quarter: 2005Q3

REPORT INFORMATION
  Report Type: 
  Country: None (occurrence: None)
  Receive Date: 20050719
  Receipt Date: 20050706
  Transmission Date: 20060218
  Serious: Yes (Hospitalization)
  Sender: FDA-Public Use
  Company Number: DE-2005-012774

PATIENT
  Age: 41 Year
  Sex: Female

DRUGS (1)
  1. MIRENA [Suspect]
     Dosage: 20 ?G/DAY, ONT, INTRA-UTERINE
     Route: 015
     Dates: start: 20050201, end: 20050601

REACTIONS (3)
  - CIRCULATORY COLLAPSE [None]
  - HEADACHE [None]
  - MALAISE [None]
